FAERS Safety Report 5946997-X (Version None)
Quarter: 2008Q4

REPORT INFORMATION
  Report Type: 
  Country: None (occurrence: None)
  Receive Date: 20081110
  Receipt Date: 20081104
  Transmission Date: 20090506
  Serious: Yes (Other)
  Sender: FDA-Public Use
  Company Number: GB-ASTRAZENECA-2008GB02090

PATIENT
  Age: 24 Year
  Sex: Male

DRUGS (2)
  1. ESOMEPRAZOLE MAGNESIUM [Suspect]
     Route: 065
  2. AZITHROMYCIN [Suspect]
     Indication: LUNG DISORDER
     Route: 065

REACTIONS (6)
  - ABDOMINAL PAIN [None]
  - COLITIS [None]
  - CONSTIPATION [None]
  - PSEUDOMEMBRANOUS COLITIS [None]
  - PYREXIA [None]
  - VOMITING [None]
